FAERS Safety Report 19651444 (Version 1)
Quarter: 2021Q3

REPORT INFORMATION
  Report Type: Spontaneous
  Country: IN (occurrence: IN)
  Receive Date: 20210803
  Receipt Date: 20210803
  Transmission Date: 20211014
  Serious: Yes (Other)
  Sender: FDA-Public Use
  Company Number: IN-ACCORD-233793

PATIENT
  Age: 30 Year
  Sex: Female

DRUGS (5)
  1. DROSPIRENONE/ETHINYLESTRADIOL [Interacting]
     Active Substance: DROSPIRENONE\ETHINYL ESTRADIOL
     Indication: MENSTRUATION IRREGULAR
     Dosage: FOR 21 DAYS FOLLOWED BY 7 DAYS COMBINED ORAL CONTRACEPTIVES (COCS)?FREE INTERVAL; PILLS
     Route: 048
  2. CLOZAPINE. [Suspect]
     Active Substance: CLOZAPINE
     Indication: SCHIZOPHRENIA
  3. FLUTAMIDE. [Concomitant]
     Active Substance: FLUTAMIDE
     Indication: HIRSUTISM
  4. CLOZAPINE. [Interacting]
     Active Substance: CLOZAPINE
     Indication: SCHIZOPHRENIA
  5. DROSPIRENONE/ETHINYLESTRADIOL [Interacting]
     Active Substance: DROSPIRENONE\ETHINYL ESTRADIOL
     Indication: MENSTRUATION IRREGULAR
     Dosage: FOR 21 DAYS FOLLOWED BY 7 DAYS COMBINED ORAL CONTRACEPTIVES (COCS)?FREE INTERVAL; PILLS
     Route: 048

REACTIONS (5)
  - Withdrawal syndrome [Recovered/Resolved]
  - Drug level decreased [Recovered/Resolved]
  - Psychotic disorder [Recovered/Resolved]
  - Drug interaction [Unknown]
  - Salivary hypersecretion [Unknown]
